FAERS Safety Report 24012782 (Version 2)
Quarter: 2024Q3

REPORT INFORMATION
  Report Type: Spontaneous
  Country: JP (occurrence: JP)
  Receive Date: 20240626
  Receipt Date: 20240710
  Transmission Date: 20241017
  Serious: Yes (Other)
  Sender: TAKEDA
  Company Number: JP-TAKEDA-2024TJP009491

PATIENT
  Age: 3 Decade
  Sex: Female

DRUGS (1)
  1. ENTYVIO [Suspect]
     Active Substance: VEDOLIZUMAB
     Indication: Crohn^s disease
     Dosage: 300 MILLIGRAM
     Route: 041
     Dates: start: 2023

REACTIONS (1)
  - Crohn^s disease [Recovered/Resolved]

NARRATIVE: CASE EVENT DATE: 20240606
